FAERS Safety Report 17022866 (Version 1)
Quarter: 2019Q4

REPORT INFORMATION
  Report Type: Spontaneous
  Country: US (occurrence: US)
  Receive Date: 20191008
  Receipt Date: 20191008
  Transmission Date: 20200122
  Serious: Yes (Hospitalization)
  Sender: FDA-Public Use
  Company Number: None

PATIENT
  Age: 60 Year
  Sex: Female

DRUGS (22)
  1. LITOTHYROXINE [Concomitant]
  2. SOLU-MEDROL [Concomitant]
     Active Substance: METHYLPREDNISOLONE SODIUM SUCCINATE
  3. MELOXICAM. [Concomitant]
     Active Substance: MELOXICAM
  4. PREDNISONE. [Concomitant]
     Active Substance: PREDNISONE
  5. CROMOLYN [Concomitant]
     Active Substance: CROMOLYN
  6. A-HYDROCORT [Concomitant]
     Active Substance: HYDROCORTISONE SODIUM SUCCINATE
  7. CALCITONIN [Concomitant]
     Active Substance: CALCITONIN
  8. CLONIDINE. [Concomitant]
     Active Substance: CLONIDINE
  9. ELIQUIS [Concomitant]
     Active Substance: APIXABAN
  10. FLUIDROCORT [Concomitant]
  11. GABAPENTIN. [Concomitant]
     Active Substance: GABAPENTIN
  12. AMLODIPINE [Concomitant]
     Active Substance: AMLODIPINE BESYLATE
  13. CARVEDILOL. [Concomitant]
     Active Substance: CARVEDILOL
  14. CELECOXIB. [Concomitant]
     Active Substance: CELECOXIB
  15. ESTROGEL [Concomitant]
     Active Substance: ESTRADIOL
  16. POT CL [Concomitant]
  17. TIROSINIT [Concomitant]
  18. GENOTROPIN [Suspect]
     Active Substance: SOMATROPIN
     Indication: HYPOPITUITARISM
     Route: 058
     Dates: start: 20160708
  19. DEXAMETH PHO INJ [Concomitant]
  20. ATENOLOL. [Concomitant]
     Active Substance: ATENOLOL
  21. PROGESTERINE [Concomitant]
  22. TRAMADOL. [Concomitant]
     Active Substance: TRAMADOL

REACTIONS (4)
  - Therapy cessation [None]
  - Rheumatoid arthritis [None]
  - Anaemia [None]
  - Primary immunodeficiency syndrome [None]

NARRATIVE: CASE EVENT DATE: 2019
